FAERS Safety Report 7814390-0 (Version None)
Quarter: 2011Q4

REPORT INFORMATION
  Report Type: 
  Country: None (occurrence: None)
  Receive Date: 20111014
  Receipt Date: 20111004
  Transmission Date: 20120403
  Serious: Yes (Hospitalization)
  Sender: FDA-Public Use
  Company Number: PHFR2011GB05370

PATIENT
  Sex: Female

DRUGS (2)
  1. MOVIPREP [Concomitant]
  2. CLOZARIL [Suspect]
     Indication: SCHIZOPHRENIA
     Dosage: 100 MG, AM AND 400 MG, PM
     Route: 048
     Dates: start: 20050304

REACTIONS (5)
  - ANXIETY [None]
  - FALL [None]
  - LIMB INJURY [None]
  - RESTLESS LEGS SYNDROME [None]
  - ANTIPSYCHOTIC DRUG LEVEL ABOVE THERAPEUTIC [None]
